FAERS Safety Report 5212765-X (Version None)
Quarter: 2007Q1

REPORT INFORMATION
  Report Type: 
  Country: None (occurrence: None)
  Receive Date: 20070118
  Receipt Date: 20070109
  Transmission Date: 20070707
  Serious: Yes (Hospitalization)
  Sender: FDA-Public Use
  Company Number: ES-ABBOTT-05P-144-0304911-00

PATIENT
  Sex: Female

DRUGS (6)
  1. HUMIRA [Suspect]
     Indication: RHEUMATOID ARTHRITIS
     Route: 058
     Dates: start: 20041214, end: 20050601
  2. LOSARTAN POTASSIUM [Concomitant]
     Indication: HYPERTENSION
     Dates: start: 20040801
  3. OMEPRAZOLE [Concomitant]
     Indication: PROPHYLAXIS AGAINST GASTROINTESTINAL ULCER
     Dates: start: 20020901
  4. DESMOPRESSIN [Concomitant]
     Indication: PAIN
     Dates: start: 20040801
  5. SERETIDE MITE [Concomitant]
     Indication: ANTASTHMATIC DRUG LEVEL THERAPEUTIC
     Dates: start: 20050303
  6. HYDROCORTISONE [Concomitant]
     Indication: RHEUMATOID ARTHRITIS
     Dates: start: 19950201

REACTIONS (1)
  - RESPIRATORY TRACT INFECTION [None]
